FAERS Safety Report 6047458-2 (Version None)
Quarter: 2009Q1

REPORT INFORMATION
  Report Type: 
  Country: None (occurrence: None)
  Receive Date: 20090122
  Receipt Date: 20090120
  Transmission Date: 20090719
  Serious: No
  Sender: FDA-Public Use
  Company Number: US-B.I. PHARMACEUTICALS,INC./RIDGEFIELD-2009-BP-00646BP

PATIENT
  Sex: Male

DRUGS (3)
  1. ZANTAC 75 [Suspect]
     Indication: GASTROOESOPHAGEAL REFLUX DISEASE
     Dosage: 150MG
     Route: 048
     Dates: start: 20081201
  2. LIPITOR [Concomitant]
     Indication: CORONARY ARTERY DISEASE
  3. ASPIRIN [Concomitant]
     Indication: CORONARY ARTERY DISEASE

REACTIONS (1)
  - HEART RATE INCREASED [None]
